FAERS Safety Report 19118904 (Version 2)
Quarter: 2021Q2

REPORT INFORMATION
  Report Type: Spontaneous
  Country: US (occurrence: US)
  Receive Date: 20210410
  Receipt Date: 20210420
  Transmission Date: 20210717
  Serious: No
  Sender: FDA-Public Use
  Company Number: US-TEVA-2021-US-1899013

PATIENT
  Age: 38 Year
  Sex: Male

DRUGS (2)
  1. DEXTROAMPHET SACCHARAT, AMPHET ASPARTATE, DEXTROAMPHET SULFATE AND AMPHET SULFAT [Suspect]
     Active Substance: AMPHETAMINE ASPARTATE\AMPHETAMINE SULFATE\DEXTROAMPHETAMINE SACCHARATE\DEXTROAMPHETAMINE SULFATE
     Indication: ATTENTION DEFICIT HYPERACTIVITY DISORDER
     Dosage: 60 MILLIGRAM DAILY; START DATE: FOR 9 YEARS
     Route: 065
  2. DEXTROAMPHET SACCHARAT, AMPHET ASPARTATE, DEXTROAMPHET SULFATE AND AMPHET SULFAT [Suspect]
     Active Substance: AMPHETAMINE ASPARTATE\AMPHETAMINE SULFATE\DEXTROAMPHETAMINE SACCHARATE\DEXTROAMPHETAMINE SULFATE
     Dosage: 60 MILLIGRAM DAILY;
     Route: 065
     Dates: start: 202103

REACTIONS (12)
  - Product quality issue [Unknown]
  - Headache [Unknown]
  - Product substitution issue [Unknown]
  - Feeling abnormal [Unknown]
  - Disturbance in attention [Unknown]
  - Balance disorder [Unknown]
  - Laziness [Unknown]
  - Product storage error [Unknown]
  - Drug ineffective [Unknown]
  - Sleep disorder [Unknown]
  - Abdominal pain upper [Unknown]
  - Somnolence [Unknown]

NARRATIVE: CASE EVENT DATE: 202103
